FAERS Safety Report 13038089 (Version 1)
Quarter: 2016Q4

REPORT INFORMATION
  Report Type: Spontaneous
  Country: US (occurrence: US)
  Receive Date: 20161218
  Receipt Date: 20161218
  Transmission Date: 20170207
  Serious: No
  Sender: FDA-Public Use
  Company Number: US-ASTRAZENECA-2016SF29080

PATIENT
  Age: 64 Year
  Sex: Female

DRUGS (29)
  1. LEVOTHYROXINE. [Concomitant]
     Active Substance: LEVOTHYROXINE
  2. PROPRANOLOL-HCL [Concomitant]
     Indication: ARRHYTHMIA
  3. PREMARIN [Suspect]
     Active Substance: ESTROGENS, CONJUGATED
     Route: 048
  4. ZITHROMAX [Suspect]
     Active Substance: AZITHROMYCIN DIHYDRATE
     Route: 065
  5. FOLIC ACID. [Concomitant]
     Active Substance: FOLIC ACID
  6. PROPAFENONE-HCL [Concomitant]
  7. ZITHROMAX [Concomitant]
     Active Substance: AZITHROMYCIN DIHYDRATE
  8. TESSALON [Suspect]
     Active Substance: BENZONATATE
     Route: 065
  9. PREMARIN [Concomitant]
     Active Substance: ESTROGENS, CONJUGATED
  10. DARVOCET-N 100 [Concomitant]
     Active Substance: ACETAMINOPHEN\PROPOXYPHENE NAPSYLATE
  11. QUININE SULFATE. [Concomitant]
     Active Substance: QUININE SULFATE
  12. TUSSIONEX PENNKINETIC ER LQCR [Concomitant]
  13. TYLENOL [Concomitant]
     Active Substance: ACETAMINOPHEN
  14. PREDNISONE. [Concomitant]
     Active Substance: PREDNISONE
  15. SERTRALINE HCL [Concomitant]
     Active Substance: SERTRALINE HYDROCHLORIDE
  16. AVELOX [Concomitant]
     Active Substance: MOXIFLOXACIN HYDROCHLORIDE
  17. MORPHINE [Concomitant]
     Active Substance: MORPHINE
  18. SUMATRIPTAN SUCCINATE. [Concomitant]
     Active Substance: SUMATRIPTAN SUCCINATE
     Indication: MIGRAINE
  19. VITAMIN D3 [Concomitant]
     Active Substance: CHOLECALCIFEROL
  20. OMEPRAZOLE. [Suspect]
     Active Substance: OMEPRAZOLE
     Route: 048
  21. EXCEDRIN [Concomitant]
     Active Substance: ACETAMINOPHEN\ASPIRIN\CAFFEINE
  22. FLONASE [Concomitant]
     Active Substance: FLUTICASONE PROPIONATE
  23. LATANOPROST. [Concomitant]
     Active Substance: LATANOPROST
     Indication: EYE DISORDER
  24. MAXALT-MLT [Concomitant]
     Active Substance: RIZATRIPTAN BENZOATE
     Indication: HEADACHE
  25. DEMEROL [Concomitant]
     Active Substance: MEPERIDINE HYDROCHLORIDE
  26. CLEOCIN [Suspect]
     Active Substance: CLINDAMYCIN PHOSPHATE
     Route: 065
  27. CITRACAL/VITAMIN D [Concomitant]
  28. RECLAST [Concomitant]
     Active Substance: ZOLEDRONIC ACID
  29. REGLAN [Concomitant]
     Active Substance: METOCLOPRAMIDE HYDROCHLORIDE

REACTIONS (3)
  - Arrhythmia [Unknown]
  - Migraine [Unknown]
  - Eye disorder [Unknown]
